FAERS Safety Report 7939987-9 (Version None)
Quarter: 2011Q4

REPORT INFORMATION
  Report Type: 
  Country: None (occurrence: None)
  Receive Date: 20111125
  Receipt Date: 20111122
  Transmission Date: 20120403
  Serious: Yes (Hospitalization)
  Sender: FDA-Public Use
  Company Number: FR-PFIZER INC-2011285049

PATIENT
  Age: 25 Year
  Sex: Female

DRUGS (2)
  1. NEULASTA [Suspect]
     Indication: BREAST SARCOMA
     Dosage: UNK
  2. DOXORUBICIN HCL [Suspect]
     Indication: BREAST SARCOMA
     Dosage: 120 MG, CYCLIC
     Route: 042
     Dates: start: 20110624, end: 20110826

REACTIONS (2)
  - CHEST PAIN [None]
  - FEBRILE NEUTROPENIA [None]
